FAERS Safety Report 19179996 (Version 1)
Quarter: 2021Q2

REPORT INFORMATION
  Report Type: Report from Study
  Country: CA (occurrence: CA)
  Receive Date: 20210426
  Receipt Date: 20210426
  Transmission Date: 20210717
  Serious: Yes (Other)
  Sender: FDA-Public Use
  Company Number: CA-EMD SERONO-9224088

PATIENT
  Age: 15 Year
  Sex: Male
  Weight: 50 kg

DRUGS (7)
  1. SAIZEN [Suspect]
     Active Substance: SOMATROPIN
     Indication: SHORT STATURE
     Dosage: SEVEN MONTHS, 5 MG VIAL
     Dates: start: 20200304, end: 20200910
  2. TESTOSTERONE. [Concomitant]
     Active Substance: TESTOSTERONE
     Indication: COELIAC DISEASE
     Dosage: 1X/MONTH, 7 MONTHS?100 MG/M1 INTRAMUSCULAR VIAL (IL)
     Dates: start: 201912
  3. SAIZEN [Suspect]
     Active Substance: SOMATROPIN
     Dosage: REINTRODUCED
     Dates: start: 20210303
  4. MULTIVITAMIN                       /00097801/ [Concomitant]
     Active Substance: VITAMINS
     Indication: PRODUCT USED FOR UNKNOWN INDICATION
  5. FISH OIL [Concomitant]
     Active Substance: FISH OIL
     Indication: PRODUCT USED FOR UNKNOWN INDICATION
  6. AERIUS (DESLORATADINE) [Concomitant]
     Active Substance: DESLORATADINE
     Indication: PRODUCT USED FOR UNKNOWN INDICATION
     Dosage: PRN
  7. PATANOL [Concomitant]
     Active Substance: OLOPATADINE HYDROCHLORIDE
     Indication: PRODUCT USED FOR UNKNOWN INDICATION
     Dosage: PRN

REACTIONS (10)
  - Off label use [Unknown]
  - Hydrocephalus [Unknown]
  - Headache [Not Recovered/Not Resolved]
  - Pseudopapilloedema [Unknown]
  - Optic disc drusen [Unknown]
  - Nausea [Unknown]
  - Idiopathic intracranial hypertension [Unknown]
  - Papilloedema [Unknown]
  - Ocular discomfort [Unknown]
  - Arachnoid cyst [Unknown]

NARRATIVE: CASE EVENT DATE: 2020
